FAERS Safety Report 16897372 (Version 1)
Quarter: 2019Q4

REPORT INFORMATION
  Report Type: Spontaneous
  Country: US (occurrence: US)
  Receive Date: 20191009
  Receipt Date: 20191009
  Transmission Date: 20200122
  Serious: Yes (Other)
  Sender: FDA-Public Use
  Company Number: US-ABBVIE-19K-163-2950251-00

PATIENT
  Sex: Female
  Weight: 117.59 kg

DRUGS (1)
  1. HUMIRA [Suspect]
     Active Substance: ADALIMUMAB
     Indication: PSORIASIS
     Route: 058
     Dates: start: 2019

REACTIONS (7)
  - Tooth infection [Recovered/Resolved]
  - Incorrect dose administered [Unknown]
  - Sinusitis [Recovered/Resolved]
  - Ear pain [Recovered/Resolved]
  - Loose tooth [Recovered/Resolved]
  - Skin fissures [Not Recovered/Not Resolved]
  - Device issue [Unknown]

NARRATIVE: CASE EVENT DATE: 2019
